FAERS Safety Report 5917678-3 (Version None)
Quarter: 2008Q4

REPORT INFORMATION
  Report Type: 
  Country: None (occurrence: None)
  Receive Date: 20081014
  Receipt Date: 20081007
  Transmission Date: 20090506
  Serious: Yes (Death, Hospitalization)
  Sender: FDA-Public Use
  Company Number: US-ABBOTT-08P-163-0471612-00

PATIENT
  Sex: Male
  Weight: 72.186 kg

DRUGS (3)
  1. RITONAVIR SOFT GELATIN CAPSULES [Suspect]
     Indication: HIV INFECTION
     Route: 048
     Dates: start: 20070928, end: 20080731
  2. DARUNAVIR [Concomitant]
     Indication: HIV INFECTION
     Route: 048
     Dates: start: 20070928, end: 20080731
  3. TMC114 [Concomitant]
     Indication: HIV INFECTION
     Route: 048
     Dates: start: 20070928, end: 20080731

REACTIONS (15)
  - BACTERIURIA [None]
  - BLOOD ALBUMIN DECREASED [None]
  - BLOOD SODIUM DECREASED [None]
  - BRONCHIAL SECRETION RETENTION [None]
  - CANDIDIASIS [None]
  - CARDIAC ARREST [None]
  - DIARRHOEA [None]
  - HAEMATOCRIT DECREASED [None]
  - HEPATITIS C [None]
  - INTERNATIONAL NORMALISED RATIO INCREASED [None]
  - LEUKOCYTURIA [None]
  - PNEUMONIA [None]
  - RED BLOOD CELLS URINE POSITIVE [None]
  - SPUTUM DISCOLOURED [None]
  - TACHYCARDIA [None]
